FAERS Safety Report 7251621-2 (Version None)
Quarter: 2011Q1

REPORT INFORMATION
  Report Type: 
  Country: None (occurrence: None)
  Receive Date: 20110128
  Receipt Date: 20110118
  Transmission Date: 20110831
  Serious: Yes (Hospitalization)
  Sender: FDA-Public Use
  Company Number: AU-PFIZER INC-2011019433

PATIENT
  Age: 47 Year
  Sex: Male

DRUGS (6)
  1. LIPITOR [Suspect]
  2. FLUPENTIXOL DIHYDROCHLORIDE [Suspect]
     Dosage: 20 MG, UNK
     Dates: start: 20100615, end: 20101004
  3. SEROQUEL [Suspect]
     Dosage: 100 MG, 1X/DAY
  4. OLMETEC [Suspect]
     Dosage: 40 MG, 1X/DAY
  5. ASPIRIN [Suspect]
  6. TRITACE [Suspect]
     Dosage: 2.5 MG, 1X/DAY

REACTIONS (3)
  - ANAEMIA [None]
  - CIRCULATORY COLLAPSE [None]
  - GLOMERULAR FILTRATION RATE DECREASED [None]
